FAERS Safety Report 21591483 (Version 1)
Quarter: 2022Q4

REPORT INFORMATION
  Report Type: Spontaneous
  Country: TW (occurrence: TW)
  Receive Date: 20221114
  Receipt Date: 20221114
  Transmission Date: 20230112
  Serious: Yes (Other)
  Sender: FDA-Public Use
  Company Number: TW-BAYER-2022A155611

PATIENT
  Age: 71 Year
  Sex: Male

DRUGS (18)
  1. XOFIGO [Suspect]
     Active Substance: RADIUM RA-223 DICHLORIDE
     Indication: Metastases to bone
     Dosage: UNK, ONCE
     Dates: start: 20210824, end: 20210824
  2. XOFIGO [Suspect]
     Active Substance: RADIUM RA-223 DICHLORIDE
     Indication: Hormone-refractory prostate cancer
     Dosage: UNK
     Dates: start: 20210928, end: 20210928
  3. XOFIGO [Suspect]
     Active Substance: RADIUM RA-223 DICHLORIDE
     Indication: Metastases to bone
     Dosage: UNK
     Dates: start: 20211026, end: 20211026
  4. XOFIGO [Suspect]
     Active Substance: RADIUM RA-223 DICHLORIDE
     Indication: Metastases to bone
     Dosage: UNK
     Dates: start: 20211123, end: 20211123
  5. XOFIGO [Suspect]
     Active Substance: RADIUM RA-223 DICHLORIDE
     Indication: Metastases to bone
     Dosage: UNK
     Dates: start: 20211221, end: 20211221
  6. XOFIGO [Suspect]
     Active Substance: RADIUM RA-223 DICHLORIDE
     Indication: Metastases to bone
     Dosage: UNK
     Dates: start: 20220118, end: 20220118
  7. GONADORELIN DIACETATE TETRAHYDRATE [Concomitant]
     Active Substance: GONADORELIN DIACETATE TETRAHYDRATE
     Indication: Metastases to bone
     Dosage: UNK
     Dates: start: 20200131
  8. GONADORELIN DIACETATE TETRAHYDRATE [Concomitant]
     Active Substance: GONADORELIN DIACETATE TETRAHYDRATE
     Indication: Hormone-refractory prostate cancer
  9. DOCETAXEL [Concomitant]
     Active Substance: DOCETAXEL
     Indication: Metastases to bone
     Dosage: 70MG/M2 BSA
     Dates: start: 20200217, end: 20200217
  10. DOCETAXEL [Concomitant]
     Active Substance: DOCETAXEL
     Indication: Hormone-refractory prostate cancer
     Dosage: 70MG/M2 BSA
     Dates: start: 20200309, end: 20200309
  11. DOCETAXEL [Concomitant]
     Active Substance: DOCETAXEL
     Indication: Metastases to bone
     Dosage: 70MG/M2 BSA
     Dates: start: 20200330, end: 20200330
  12. DOCETAXEL [Concomitant]
     Active Substance: DOCETAXEL
     Indication: Metastases to bone
     Dosage: 70MG/M2 BSA
     Dates: start: 20200420, end: 20200420
  13. DOCETAXEL [Concomitant]
     Active Substance: DOCETAXEL
     Indication: Metastases to bone
     Dosage: 70MG/M2 BSA
     Dates: start: 20200511, end: 20200511
  14. DOCETAXEL [Concomitant]
     Active Substance: DOCETAXEL
     Indication: Metastases to bone
     Dosage: 70MG/M2 BSA
     Dates: start: 20200601, end: 20200601
  15. CASODEX [Concomitant]
     Active Substance: BICALUTAMIDE
     Indication: Metastases to bone
     Dosage: UNK
     Dates: start: 202103
  16. CASODEX [Concomitant]
     Active Substance: BICALUTAMIDE
     Indication: Hormone-refractory prostate cancer
  17. ENZALUTAMIDE [Concomitant]
     Active Substance: ENZALUTAMIDE
     Indication: Metastases to bone
     Dosage: UNK
     Dates: start: 202205
  18. ENZALUTAMIDE [Concomitant]
     Active Substance: ENZALUTAMIDE
     Indication: Hormone-refractory prostate cancer

REACTIONS (3)
  - Metastases to bone [None]
  - Pulmonary mass [None]
  - Lung infiltration [None]

NARRATIVE: CASE EVENT DATE: 20220118
